FAERS Safety Report 12442578 (Version 1)
Quarter: 2016Q2

REPORT INFORMATION
  Report Type: Spontaneous
  Country: IT (occurrence: IT)
  Receive Date: 20160607
  Receipt Date: 20160607
  Transmission Date: 20160815
  Serious: Yes (Hospitalization)
  Sender: FDA-Public Use
  Company Number: PHHY2016IT075235

PATIENT
  Age: 40 Year
  Sex: Male

DRUGS (1)
  1. EXJADE [Suspect]
     Active Substance: DEFERASIROX
     Indication: THALASSAEMIA BETA
     Dosage: 2000 MG, QD
     Route: 048
     Dates: start: 20140428, end: 20151129

REACTIONS (6)
  - Colitis ischaemic [Recovered/Resolved]
  - Diarrhoea haemorrhagic [Unknown]
  - Diarrhoea [Unknown]
  - Rectal tenesmus [Unknown]
  - Flank pain [Unknown]
  - Abdominal pain [Unknown]

NARRATIVE: CASE EVENT DATE: 20151129
